FAERS Safety Report 23267729 (Version 2)
Quarter: 2023Q4

REPORT INFORMATION
  Report Type: Spontaneous
  Country: IT (occurrence: IT)
  Receive Date: 20231206
  Receipt Date: 20231228
  Transmission Date: 20240109
  Serious: Yes (Other)
  Sender: FDA-Public Use
  Company Number: IT-SUN PHARMACEUTICAL INDUSTRIES LTD-2023R1-421476

PATIENT
  Age: 30 Year
  Sex: Female

DRUGS (1)
  1. ZOLPIDEM [Suspect]
     Active Substance: ZOLPIDEM TARTRATE
     Indication: Hypotonia
     Dosage: UNK
     Route: 048

REACTIONS (3)
  - Accidental exposure to product [Unknown]
  - Depressed level of consciousness [Unknown]
  - Exposure during pregnancy [Unknown]
